FAERS Safety Report 6959048-5 (Version None)
Quarter: 2010Q3

REPORT INFORMATION
  Report Type: 
  Country: None (occurrence: None)
  Receive Date: 20100831
  Receipt Date: 20100809
  Transmission Date: 20110219
  Serious: No
  Sender: FDA-Public Use
  Company Number: US-JNJFOC-20100805644

PATIENT
  Sex: Female
  Weight: 53.98 kg

DRUGS (35)
  1. FENTANYL CITRATE [Suspect]
     Indication: RHEUMATOID ARTHRITIS
     Route: 062
  2. FENTANYL CITRATE [Suspect]
     Dosage: 100 AND 50 UG/HR PATCHES
     Route: 062
  3. FENTANYL CITRATE [Suspect]
     Dosage: 25 UG/HR AND 12.5 UG/HR
     Route: 062
  4. FENTANYL CITRATE [Suspect]
     Indication: OSTEOARTHRITIS
     Dosage: 25 UG/HR AND 12.5 UG/HR
     Route: 062
  5. FENTANYL CITRATE [Suspect]
     Dosage: 100 AND 50 UG/HR PATCHES
     Route: 062
  6. FENTANYL CITRATE [Suspect]
     Route: 062
  7. FENTANYL CITRATE [Suspect]
     Indication: FIBROMYALGIA
     Dosage: 100 AND 50 UG/HR PATCHES
     Route: 062
  8. FENTANYL CITRATE [Suspect]
     Dosage: 25 UG/HR AND 12.5 UG/HR
     Route: 062
  9. FENTANYL CITRATE [Suspect]
     Route: 062
  10. DURAGESIC-100 [Suspect]
     Indication: RHEUMATOID ARTHRITIS
     Route: 062
  11. DURAGESIC-100 [Suspect]
     Route: 062
  12. DURAGESIC-100 [Suspect]
     Indication: OSTEOARTHRITIS
     Route: 062
  13. DURAGESIC-100 [Suspect]
     Route: 062
  14. DURAGESIC-100 [Suspect]
     Indication: FIBROMYALGIA
     Route: 062
  15. DURAGESIC-100 [Suspect]
     Route: 062
  16. REMICADE [Concomitant]
     Indication: CROHN'S DISEASE
     Route: 048
  17. COMPAZINE [Concomitant]
     Indication: NAUSEA
     Route: 048
  18. ZANTAC [Concomitant]
     Dosage: 2 TABLETS
     Route: 048
  19. UNKNOWN MEDICATION [Concomitant]
     Indication: NAUSEA
     Route: 048
  20. DULCOLAX [Concomitant]
     Indication: CONSTIPATION
     Route: 048
  21. TRAMADOL HCL [Concomitant]
     Route: 048
  22. LYRICA [Concomitant]
     Route: 048
  23. ASCAL [Concomitant]
     Dosage: 2 TABLETS
     Route: 048
  24. LIDODERM [Concomitant]
     Indication: PAIN
     Route: 062
  25. PERCOCET [Concomitant]
     Indication: PAIN
     Route: 048
  26. NEURONTIN [Concomitant]
     Indication: CONVULSION
     Route: 048
  27. ZOLOFT [Concomitant]
     Indication: DEPRESSION
     Route: 048
  28. CLARITIN [Concomitant]
     Route: 048
  29. SINGULAIR [Concomitant]
     Indication: ASTHMA
     Dosage: DAILY
     Route: 048
  30. ALBUTEROL [Concomitant]
     Indication: ASTHMA
     Dosage: ONE PUFF AS NEEDED
     Route: 055
  31. ATROVENT [Concomitant]
     Indication: ASTHMA
     Route: 055
  32. POTASSIUM [Concomitant]
     Indication: HYPOKALAEMIA
     Dosage: DAILY
     Route: 048
  33. IMITREX [Concomitant]
     Indication: MIGRAINE
     Route: 050
  34. NITROSTAT [Concomitant]
     Indication: CORONARY ARTERY DISEASE
     Route: 060
  35. REMERON [Concomitant]
     Indication: SLEEP DISORDER
     Dosage: DAILY
     Route: 048

REACTIONS (6)
  - CONVULSION [None]
  - ERYTHEMA [None]
  - OVARIAN CYST [None]
  - TREATMENT NONCOMPLIANCE [None]
  - WITHDRAWAL SYNDROME [None]
  - WRONG TECHNIQUE IN DRUG USAGE PROCESS [None]
